FAERS Safety Report 21253277 (Version 1)
Quarter: 2022Q3

REPORT INFORMATION
  Report Type: Spontaneous
  Country: US (occurrence: None)
  Receive Date: 20220824
  Receipt Date: 20220824
  Transmission Date: 20221027
  Serious: Yes (Disabling)
  Sender: FDA-Public Use
  Company Number: None

PATIENT
  Age: 71 Year
  Sex: Female
  Weight: 58.5 kg

DRUGS (11)
  1. PAXLOVID [Suspect]
     Active Substance: NIRMATRELVIR\RITONAVIR
     Indication: SARS-CoV-2 test positive
     Dates: start: 20220819, end: 20220824
  2. ARMOUR THYROID [Concomitant]
     Active Substance: THYROID, PORCINE
  3. PROZAC [Concomitant]
     Active Substance: FLUOXETINE HYDROCHLORIDE
  4. VITAMINS [Concomitant]
     Active Substance: VITAMINS
  5. Super Collagen plus C [Concomitant]
  6. Bone-up [Concomitant]
  7. PROBIOTICS NOS [Concomitant]
     Active Substance: PROBIOTICS NOS
  8. Ashwaga [Concomitant]
  9. Immune Care [Concomitant]
  10. Black Berry Tonic [Concomitant]
  11. HERBALS [Concomitant]
     Active Substance: HERBALS

REACTIONS (2)
  - Dysgeusia [None]
  - Adverse drug reaction [None]

NARRATIVE: CASE EVENT DATE: 20220820
